FAERS Safety Report 5372545-1 (Version None)
Quarter: 2007Q2

REPORT INFORMATION
  Report Type: 
  Country: None (occurrence: None)
  Receive Date: 20070626
  Receipt Date: 20070613
  Transmission Date: 20071010
  Serious: Yes (Life-Threatening, Hospitalization, Disabling)
  Sender: FDA-Public Use
  Company Number: 157594ISR

PATIENT
  Age: 33 Year
  Sex: Female

DRUGS (1)
  1. COPAXONE [Suspect]
     Indication: MULTIPLE SCLEROSIS
     Dosage: 20 MG (20 MG, 1 IN 1 D), SUBCUTANEOUS
     Route: 058
     Dates: start: 20070430

REACTIONS (5)
  - ASTHENIA [None]
  - CONFUSIONAL STATE [None]
  - DYSPHASIA [None]
  - ENCEPHALITIS [None]
  - UNRESPONSIVE TO STIMULI [None]
